FAERS Safety Report 13082775 (Version 2)
Quarter: 2017Q1

REPORT INFORMATION
  Report Type: Report from Study
  Country: US (occurrence: US)
  Receive Date: 20170103
  Receipt Date: 20170104
  Transmission Date: 20170428
  Serious: Yes (Other)
  Sender: FDA-Public Use
  Company Number: US-BIOGEN-2016BI00336500

PATIENT
  Age: 50 Year
  Sex: Female

DRUGS (3)
  1. ALEVE [Concomitant]
     Active Substance: NAPROXEN SODIUM
     Indication: INFLUENZA LIKE ILLNESS
     Route: 065
  2. PREMPRO [Concomitant]
     Active Substance: ESTROGENS, CONJUGATED\MEDROXYPROGESTERONE ACETATE
     Indication: HORMONE REPLACEMENT THERAPY
     Route: 065
  3. PLEGRIDY [Suspect]
     Active Substance: PEGINTERFERON BETA-1A
     Indication: MULTIPLE SCLEROSIS
     Route: 058
     Dates: start: 20161223

REACTIONS (19)
  - Musculoskeletal discomfort [Unknown]
  - Chills [Unknown]
  - Abasia [Recovered/Resolved]
  - Breast pain [Not Recovered/Not Resolved]
  - Hypoaesthesia [Recovered/Resolved]
  - Injection site erythema [Not Recovered/Not Resolved]
  - Arthralgia [Unknown]
  - Headache [Unknown]
  - Vomiting [Unknown]
  - Pyrexia [Recovered/Resolved]
  - Bone pain [Unknown]
  - Menstruation irregular [Not Recovered/Not Resolved]
  - Breast swelling [Not Recovered/Not Resolved]
  - Myalgia [Unknown]
  - Injection site urticaria [Not Recovered/Not Resolved]
  - Migraine [Unknown]
  - Mobility decreased [Unknown]
  - Influenza like illness [Not Recovered/Not Resolved]
  - Asthenia [Recovered/Resolved]

NARRATIVE: CASE EVENT DATE: 20161223
